FAERS Safety Report 23692649 (Version 1)
Quarter: 2024Q2

REPORT INFORMATION
  Report Type: Spontaneous
  Country: PT (occurrence: PT)
  Receive Date: 20240401
  Receipt Date: 20240401
  Transmission Date: 20240717
  Serious: Yes (Other)
  Sender: FDA-Public Use
  Company Number: PT-AKCEA THERAPEUTICS, INC.-2024IS002875

PATIENT

DRUGS (2)
  1. TEGSEDI [Suspect]
     Active Substance: INOTERSEN SODIUM
     Indication: Acquired ATTR amyloidosis
     Dosage: 284 MG, QW
     Route: 058
     Dates: start: 20201112
  2. SIMVASTATIN [Concomitant]
     Active Substance: SIMVASTATIN
     Indication: Dyslipidaemia
     Dosage: UNK (SHE TOOK IRREGULARLY)
     Route: 065

REACTIONS (21)
  - Escherichia urinary tract infection [Unknown]
  - Red blood cell sedimentation rate increased [Unknown]
  - Blood cholesterol increased [Unknown]
  - Blood triglycerides increased [Unknown]
  - Blood chloride increased [Unknown]
  - Plateletcrit increased [Unknown]
  - Blood creatinine decreased [Unknown]
  - Troponin T increased [Unknown]
  - Serum ferritin increased [Unknown]
  - Non-high-density lipoprotein cholesterol increased [Unknown]
  - Very low density lipoprotein increased [Unknown]
  - C-reactive protein increased [Unknown]
  - Mean cell haemoglobin concentration increased [Unknown]
  - Blood bilirubin decreased [Unknown]
  - Protein total increased [Unknown]
  - Vitamin D decreased [Unknown]
  - Protein urine present [Unknown]
  - Albumin urine present [Unknown]
  - Neurogenic bladder [Unknown]
  - Urinary retention [Unknown]
  - Glomerular filtration rate decreased [Unknown]

NARRATIVE: CASE EVENT DATE: 20201112
